FAERS Safety Report 16873338 (Version 1)
Quarter: 2019Q4

REPORT INFORMATION
  Report Type: Spontaneous
  Country: CA (occurrence: CA)
  Receive Date: 20191001
  Receipt Date: 20191001
  Transmission Date: 20200122
  Serious: Yes (Other)
  Sender: FDA-Public Use
  Company Number: CA-PFIZER INC-2019419147

PATIENT
  Age: 77 Year
  Sex: Female

DRUGS (5)
  1. PRO-CLONAZEPAM [Concomitant]
     Dosage: 0.5 MG, AS NEEDED
  2. SYNTHROID [Concomitant]
     Active Substance: LEVOTHYROXINE SODIUM
     Dosage: 0.075 MG, UNK
  3. EFFEXOR [Suspect]
     Active Substance: VENLAFAXINE HYDROCHLORIDE
     Dosage: 37.5 MG, UNK
     Dates: start: 20190923
  4. EFFEXOR [Suspect]
     Active Substance: VENLAFAXINE HYDROCHLORIDE
     Dosage: UNK
     Dates: start: 201906
  5. COVERSYL AM [Concomitant]
     Active Substance: AMLODIPINE BESYLATE\PERINDOPRIL ERBUMINE
     Dosage: 8 MG, UNK

REACTIONS (9)
  - Vomiting [Unknown]
  - Feeling hot [Unknown]
  - Vision blurred [Unknown]
  - Gait inability [Unknown]
  - Hyperhidrosis [Unknown]
  - Dizziness [Unknown]
  - Eye movement disorder [Unknown]
  - Fatigue [Unknown]
  - Balance disorder [Unknown]

NARRATIVE: CASE EVENT DATE: 2019
